FAERS Safety Report 11390859 (Version 1)
Quarter: 2015Q3

REPORT INFORMATION
  Report Type: Spontaneous
  Country: US (occurrence: US)
  Receive Date: 20150818
  Receipt Date: 20150818
  Transmission Date: 20151125
  Serious: Yes (Other)
  Sender: FDA-Public Use
  Company Number: US-ROCHE-1621226

PATIENT
  Sex: Male

DRUGS (7)
  1. TAMIFLU [Suspect]
     Active Substance: OSELTAMIVIR PHOSPHATE
     Indication: PRODUCT USED FOR UNKNOWN INDICATION
     Route: 065
  2. HYDROCODONE/APAP [Concomitant]
     Active Substance: ACETAMINOPHEN\HYDROCODONE BITARTRATE
  3. ATENOLOL. [Concomitant]
     Active Substance: ATENOLOL
  4. LOSARTAN. [Concomitant]
     Active Substance: LOSARTAN
  5. SUTENT [Suspect]
     Active Substance: SUNITINIB MALATE
     Route: 065
  6. SUTENT [Suspect]
     Active Substance: SUNITINIB MALATE
     Indication: PRODUCT USED FOR UNKNOWN INDICATION
     Dosage: 28 DAYS ON/14 DAYS OFF
     Route: 065
     Dates: start: 20150706
  7. XGEVA [Concomitant]
     Active Substance: DENOSUMAB

REACTIONS (1)
  - Renal cancer metastatic [Unknown]
